FAERS Safety Report 6921361-5 (Version None)
Quarter: 2010Q3

REPORT INFORMATION
  Report Type: 
  Country: None (occurrence: None)
  Receive Date: 20100812
  Receipt Date: 20100707
  Transmission Date: 20110219
  Serious: No
  Sender: FDA-Public Use
  Company Number: US-BAYER-201033177GPV

PATIENT
  Age: 91 Year
  Sex: Female

DRUGS (1)
  1. NAPROSYN [Suspect]
     Indication: PRODUCT USED FOR UNKNOWN INDICATION

REACTIONS (2)
  - URTICARIA [None]
  - VISION BLURRED [None]
